FAERS Safety Report 10519419 (Version 1)
Quarter: 2014Q4

REPORT INFORMATION
  Report Type: Spontaneous
  Country: US (occurrence: None)
  Receive Date: 20141014
  Receipt Date: 20141014
  Transmission Date: 20150528
  Serious: Yes (Life-Threatening, Hospitalization)
  Sender: FDA-Public Use
  Company Number: None

PATIENT
  Age: 80 Year
  Sex: Male
  Weight: 66.2 kg

DRUGS (2)
  1. LIDOCAINE. [Suspect]
     Active Substance: LIDOCAINE
     Indication: BACK PAIN
     Route: 061
     Dates: start: 20141009, end: 20141009
  2. AMIODARONE [Concomitant]
     Active Substance: AMIODARONE

REACTIONS (8)
  - Atrioventricular block complete [None]
  - Coronary artery stenosis [None]
  - Acute myocardial infarction [None]
  - Atrial fibrillation [None]
  - Coronary artery thrombosis [None]
  - Bundle branch block right [None]
  - Atrioventricular block [None]
  - Fatigue [None]

NARRATIVE: CASE EVENT DATE: 20141009
